FAERS Safety Report 6285044-X (Version None)
Quarter: 2009Q3

REPORT INFORMATION
  Report Type: 
  Country: None (occurrence: None)
  Receive Date: 20090727
  Receipt Date: 20090718
  Transmission Date: 20100115
  Serious: Yes (Hospitalization)
  Sender: FDA-Public Use
  Company Number: DE-ABBOTT-09P-062-0586100-00

PATIENT
  Sex: Female

DRUGS (3)
  1. HUMIRA [Suspect]
     Indication: CROHN'S DISEASE
     Route: 050
     Dates: start: 20080802
  2. HUMIRA [Suspect]
  3. B-ANTAGONIST (NOT SPECIFIED) [Concomitant]
     Indication: HYPERTENSION
     Route: 048

REACTIONS (1)
  - VITAMIN B COMPLEX DEFICIENCY [None]
